FAERS Safety Report 7888306-5 (Version None)
Quarter: 2011Q4

REPORT INFORMATION
  Report Type: 
  Country: None (occurrence: None)
  Receive Date: 20111103
  Receipt Date: 20111021
  Transmission Date: 20120403
  Serious: Yes (Hospitalization)
  Sender: FDA-Public Use
  Company Number: US-BAYER-2011-048225

PATIENT
  Age: 44 Year
  Sex: Female
  Weight: 75.283 kg

DRUGS (4)
  1. TIZANIDINE HCL [Concomitant]
     Indication: MUSCLE SPASMS
     Dosage: 4 MG, UNK
     Route: 048
     Dates: start: 20020912
  2. PHENTERMINE [Concomitant]
     Indication: SUPPLEMENTATION THERAPY
     Dosage: UNK
     Dates: start: 20021101
  3. PROMETHAZINE [Concomitant]
     Dosage: 25 MG, UNK
     Route: 048
     Dates: start: 20020912
  4. YASMIN [Suspect]
     Dosage: UNK
     Dates: start: 20020101, end: 20030101

REACTIONS (3)
  - MYOCARDIAL INFARCTION [None]
  - PAIN [None]
  - INJURY [None]
